FAERS Safety Report 18695249 (Version 1)
Quarter: 2021Q1

REPORT INFORMATION
  Report Type: Spontaneous
  Country: JP (occurrence: JP)
  Receive Date: 20210104
  Receipt Date: 20210104
  Transmission Date: 20210419
  Serious: Yes (Other)
  Sender: FDA-Public Use
  Company Number: JP-PFIZER INC-2020516374

PATIENT
  Age: 75 Year
  Sex: Male

DRUGS (1)
  1. SUTENT [Suspect]
     Active Substance: SUNITINIB MALATE
     Dosage: 2 DF, CYCLIC (2 WEEKS ON AND 1 WEEK OFF)
     Dates: start: 20200528

REACTIONS (3)
  - Fatigue [Unknown]
  - Malaise [Unknown]
  - Myelosuppression [Unknown]

NARRATIVE: CASE EVENT DATE: 2020
